FAERS Safety Report 4508738-2 (Version None)
Quarter: 2004Q4

REPORT INFORMATION
  Report Type: 
  Country: None (occurrence: None)
  Receive Date: 20041123
  Receipt Date: 20040624
  Transmission Date: 20050328
  Serious: No
  Sender: FDA-Public Use
  Company Number: US-GLAXOSMITHKLINE-A0515910A

PATIENT
  Age: 77 Year
  Sex: Male

DRUGS (12)
  1. WELLBUTRIN SR [Suspect]
     Indication: ILL-DEFINED DISORDER
     Dosage: 150MG PER DAY
     Route: 048
  2. COREG [Concomitant]
  3. PROSCAR [Concomitant]
  4. NEURONTIN [Concomitant]
  5. FUROSEMIDE [Concomitant]
  6. MONOPRIL [Concomitant]
  7. POTASSIUM [Concomitant]
  8. LANOXIN [Concomitant]
  9. NITRO-DUR [Concomitant]
  10. INSULIN [Concomitant]
  11. HEMOCYTE [Concomitant]
  12. AMITRIPTYLINE [Concomitant]

REACTIONS (1)
  - INSOMNIA [None]
